FAERS Safety Report 16970435 (Version 6)
Quarter: 2020Q1

REPORT INFORMATION
  Report Type: Report from Study
  Country: US (occurrence: US)
  Receive Date: 20191029
  Receipt Date: 20200203
  Transmission Date: 20200409
  Serious: Yes (Hospitalization)
  Sender: FDA-Public Use
  Company Number: US-PFIZER INC-2019450649

PATIENT
  Age: 22 Year
  Sex: Male
  Weight: 70.7 kg

DRUGS (4)
  1. ABILIFY [Concomitant]
     Active Substance: ARIPIPRAZOLE
     Indication: MOOD ALTERED
     Dosage: 5 MG, DAILY
     Route: 048
     Dates: start: 20190920, end: 20191011
  2. LORLATINIB [Suspect]
     Active Substance: LORLATINIB
     Dosage: 100 MG, DAILY
     Route: 048
     Dates: start: 20190919, end: 20191011
  3. LORLATINIB [Suspect]
     Active Substance: LORLATINIB
     Indication: NEUROBLASTOMA
     Dosage: 150 MG, 1X/DAY
     Route: 048
     Dates: start: 20190724, end: 2019
  4. BACTRIM [Concomitant]
     Active Substance: SULFAMETHOXAZOLE\TRIMETHOPRIM
     Indication: ANTIFUNGAL PROPHYLAXIS
     Dosage: 1 DF, CYCLIC (800-160 MG, TAKE 1 TABLET, BID SAT + SUN)
     Route: 048
     Dates: start: 20190807, end: 20191011

REACTIONS (1)
  - Psychotic disorder [Recovered/Resolved with Sequelae]

NARRATIVE: CASE EVENT DATE: 20191012
